FAERS Safety Report 4648319-3 (Version None)
Quarter: 2005Q2

REPORT INFORMATION
  Report Type: 
  Country: None (occurrence: None)
  Receive Date: 20050429
  Receipt Date: 20050407
  Transmission Date: 20051028
  Serious: Yes (Other)
  Sender: FDA-Public Use
  Company Number: CA-ROCHE-401304

PATIENT
  Age: 45 Year
  Sex: Male

DRUGS (4)
  1. KYTRIL [Suspect]
     Indication: NAUSEA
     Dosage: ROUTE: IV/PO.
     Route: 050
     Dates: start: 20050228, end: 20050320
  2. FLUOROURACIL [Suspect]
     Indication: COLON CANCER
     Route: 042
     Dates: start: 20050215, end: 20050318
  3. PROCHLORPERAZINE [Suspect]
     Indication: NAUSEA
     Route: 048
     Dates: start: 20050215, end: 20050323
  4. LEUCOVORIN CALCIUM [Concomitant]
     Indication: COLON CANCER
     Route: 042
     Dates: start: 20050215, end: 20050318

REACTIONS (3)
  - EYE PAIN [None]
  - PHOTOPHOBIA [None]
  - VISION BLURRED [None]
